FAERS Safety Report 9523820 (Version 1)
Quarter: 2013Q3

REPORT INFORMATION
  Report Type: Spontaneous
  Country: US (occurrence: None)
  Receive Date: 20130912
  Receipt Date: 20130912
  Transmission Date: 20140515
  Serious: Yes (Hospitalization, Other)
  Sender: FDA-Public Use
  Company Number: 001489850A

PATIENT
  Sex: Female

DRUGS (2)
  1. MEANINGFUL BEAUTY ANTIOXIDANT DAY CREME WITH SPF 20 [Suspect]
     Dosage: DERMAL
     Dates: start: 20121218
  2. MEANINGFUL BEAUTY SKIN BRIGHTENING DECOLLETE NECK TREATMENT SPF.15 [Suspect]
     Dosage: DERMAL
     Dates: start: 20121218

REACTIONS (6)
  - Rash [None]
  - Eye swelling [None]
  - Burning sensation [None]
  - Scar [None]
  - Blindness unilateral [None]
  - Skin test positive [None]
